FAERS Safety Report 15902585 (Version 5)
Quarter: 2022Q2

REPORT INFORMATION
  Report Type: Report from Study
  Country: US (occurrence: US)
  Receive Date: 20190201
  Receipt Date: 20220621
  Transmission Date: 20220721
  Serious: Yes (Hospitalization)
  Sender: FDA-Public Use
  Company Number: US-SHIRE-US201903558

PATIENT
  Age: 11 Year
  Sex: Female

DRUGS (3)
  1. VELAGLUCERASE ALFA [Suspect]
     Active Substance: VELAGLUCERASE ALFA
     Indication: Gaucher^s disease
     Dosage: 5 DOSAGE FORM, 2/WEEK
     Route: 042
     Dates: start: 20170201
  2. VELAGLUCERASE ALFA [Suspect]
     Active Substance: VELAGLUCERASE ALFA
     Dosage: 2000 INTERNATIONAL UNIT, Q2WEEKS
     Route: 042
     Dates: start: 20180601
  3. VELAGLUCERASE ALFA [Suspect]
     Active Substance: VELAGLUCERASE ALFA
     Dosage: 12 DOSAGE FORM, 2/WEEK
     Route: 042
     Dates: start: 20170201

REACTIONS (8)
  - Cough [Recovering/Resolving]
  - Pyrexia [Unknown]
  - Oropharyngeal pain [Recovering/Resolving]
  - Abdominal pain upper [Recovering/Resolving]
  - Adverse event [Not Recovered/Not Resolved]
  - Dyspnoea [Recovering/Resolving]
  - Infusion related reaction [Unknown]
  - Inappropriate schedule of product administration [Not Recovered/Not Resolved]

NARRATIVE: CASE EVENT DATE: 20190130
